FAERS Safety Report 11909159 (Version 2)
Quarter: 2016Q1

REPORT INFORMATION
  Report Type: Report from Study
  Country: PT (occurrence: PT)
  Receive Date: 20160112
  Receipt Date: 20160125
  Transmission Date: 20160526
  Serious: Yes (Death, Hospitalization, Other)
  Sender: FDA-Public Use
  Company Number: PT-ROCHE-1686629

PATIENT
  Age: 72 Year
  Sex: Male
  Weight: 53 kg

DRUGS (4)
  1. VEMURAFENIB [Suspect]
     Active Substance: VEMURAFENIB
     Indication: MALIGNANT MELANOMA
     Route: 048
     Dates: start: 20151030, end: 20151113
  2. VEMURAFENIB [Suspect]
     Active Substance: VEMURAFENIB
     Route: 048
     Dates: start: 20151113, end: 20151124
  3. APIXABAN [Concomitant]
     Active Substance: APIXABAN
     Indication: HYPOCOAGULABLE STATE
     Route: 048
     Dates: start: 1995
  4. OMEPRAZOLE. [Concomitant]
     Active Substance: OMEPRAZOLE
     Route: 048
     Dates: start: 2010

REACTIONS (8)
  - Pyrexia [Recovering/Resolving]
  - Decreased appetite [Recovering/Resolving]
  - Wound necrosis [Not Recovered/Not Resolved]
  - Death [Fatal]
  - Rash [Recovering/Resolving]
  - Pruritus [Recovering/Resolving]
  - Arthralgia [Recovered/Resolved]
  - Fatigue [Recovering/Resolving]

NARRATIVE: CASE EVENT DATE: 201511
